FAERS Safety Report 6357392-6 (Version None)
Quarter: 2009Q3

REPORT INFORMATION
  Report Type: 
  Country: None (occurrence: None)
  Receive Date: 20090916
  Receipt Date: 20071011
  Transmission Date: 20100115
  Serious: Yes (Other)
  Sender: FDA-Public Use
  Company Number: US-ASTRAZENECA-2006UW23074

PATIENT
  Age: 18988 Day
  Sex: Female
  Weight: 101.6 kg

DRUGS (17)
  1. SEROQUEL [Suspect]
     Indication: SCHIZOPHRENIA
     Dosage: 50-600 MG
     Route: 048
     Dates: start: 20010525
  2. SEROQUEL [Suspect]
     Indication: DEPRESSION
     Dosage: 50-600 MG
     Route: 048
     Dates: start: 20010525
  3. SEROQUEL [Suspect]
     Indication: ANXIETY
     Dosage: 50-600 MG
     Route: 048
     Dates: start: 20010525
  4. SEROQUEL [Suspect]
     Route: 048
  5. SEROQUEL [Suspect]
     Route: 048
  6. SEROQUEL [Suspect]
     Route: 048
  7. HALDOL [Concomitant]
  8. RISPERDAL [Concomitant]
  9. ZYPREXA [Concomitant]
  10. PROCARDIA XL [Concomitant]
     Dosage: 60-90 MG DAILY
     Route: 048
     Dates: start: 19950918
  11. HUMULIN N [Concomitant]
     Dosage: 100 U/ML VIAL
     Dates: start: 19990102
  12. LIPITOR [Concomitant]
     Dosage: 10-20 MG DAILY
     Route: 048
     Dates: start: 20000422
  13. ASPIRIN [Concomitant]
     Route: 048
     Dates: start: 20050820
  14. TRAZODONE [Concomitant]
     Indication: INSOMNIA
     Dosage: 100 MG ONE HALF TO ONE AT NIGHT
     Dates: start: 20010525
  15. DOXEPIN HCL [Concomitant]
     Dosage: 75 MG DISPENSED
     Dates: start: 19990102
  16. BENICAR HCT [Concomitant]
     Dosage: 40/12.5 MG EVERY DAY
     Dates: start: 20080804
  17. VASOTEC [Concomitant]
     Dosage: 5-10 MG
     Dates: start: 19931027

REACTIONS (3)
  - DIABETES MELLITUS INADEQUATE CONTROL [None]
  - DIABETIC NEUROPATHY [None]
  - HYPERGLYCAEMIA [None]
